FAERS Safety Report 6338391-7 (Version None)
Quarter: 2009Q3

REPORT INFORMATION
  Report Type: 
  Country: None (occurrence: None)
  Receive Date: 20090901
  Receipt Date: 20090824
  Transmission Date: 20100115
  Serious: Yes (Other)
  Sender: FDA-Public Use
  Company Number: 2008US000743

PATIENT
  Age: 3 Year
  Sex: Male

DRUGS (8)
  1. PROTOPIC [Suspect]
     Indication: DERMATITIS ATOPIC
     Dosage: 0.03 %
     Dates: start: 20040909
  2. ELIDEL [Suspect]
     Indication: RASH
     Dates: start: 20040716
  3. SINGULAIR [Concomitant]
  4. ALLEGRA [Concomitant]
  5. LOCOID [Concomitant]
  6. AVEENO ANTI-ITCH (CAMPHOR) [Concomitant]
  7. ZOFRAN [Concomitant]
  8. BACTRIM [Concomitant]

REACTIONS (12)
  - BLOOD LACTATE DEHYDROGENASE INCREASED [None]
  - DECREASED APPETITE [None]
  - DIARRHOEA [None]
  - DYSPNOEA [None]
  - FAT NECROSIS [None]
  - FEBRILE CONVULSION [None]
  - METASTATIC MALIGNANT MELANOMA [None]
  - NEUTROPENIA [None]
  - PYREXIA [None]
  - RASH [None]
  - SUTURE RELATED COMPLICATION [None]
  - VOMITING [None]
